FAERS Safety Report 9516355 (Version 1)
Quarter: 2013Q1

REPORT INFORMATION
  Report Type: Spontaneous
  Country: US (occurrence: None)
  Receive Date: 20130305
  Receipt Date: 20130305
  Transmission Date: 20140127
  Serious: Yes (Other)
  Sender: FDA-Public Use
  Company Number: 163-21880-12012063

PATIENT
  Age: 76 Year
  Sex: Female

DRUGS (7)
  1. REVLIMID (LENALIDOMIDE) (CAPSULES) [Suspect]
     Indication: PLASMA CELL MYELOMA
     Dosage: X 21 DAYS
     Route: 048
     Dates: start: 201201, end: 20120119
  2. VITAMIN B12 [Concomitant]
  3. ASA [Concomitant]
  4. CALCIUM [Concomitant]
  5. METFORMIN [Concomitant]
  6. VITAMIN C [Concomitant]
  7. PRILOSEC [Concomitant]

REACTIONS (2)
  - Rash generalised [None]
  - Pruritus [None]
